FAERS Safety Report 19050591 (Version 1)
Quarter: 2021Q1

REPORT INFORMATION
  Report Type: Report from Study
  Country: IT (occurrence: IT)
  Receive Date: 20210323
  Receipt Date: 20210323
  Transmission Date: 20210420
  Serious: Yes (Other)
  Sender: FDA-Public Use
  Company Number: IT-INCYTE CORPORATION-2021IN002542

PATIENT

DRUGS (5)
  1. JAKAVI [Suspect]
     Active Substance: RUXOLITINIB
     Indication: POLYCYTHAEMIA VERA
     Dosage: 20 UNK
     Route: 048
     Dates: start: 20181109, end: 20181228
  2. JAKAVI [Suspect]
     Active Substance: RUXOLITINIB
     Dosage: 15 UNK
     Route: 048
     Dates: start: 20181229, end: 20191010
  3. JAKAVI [Suspect]
     Active Substance: RUXOLITINIB
     Dosage: 30 UNK
     Route: 048
     Dates: start: 20191011
  4. PERSANTIN [Concomitant]
     Active Substance: DIPYRIDAMOLE
     Indication: CARDIOVASCULAR EVENT PROPHYLAXIS
     Dosage: 75 UNK
     Route: 065
     Dates: start: 201607
  5. ESOMEPRAZOLO [Concomitant]
     Active Substance: ESOMEPRAZOLE
     Indication: PROPHYLAXIS
     Dosage: 20 UNK
     Route: 065
     Dates: start: 201607

REACTIONS (9)
  - Asthenia [Recovered/Resolved]
  - Platelet disorder [Not Recovered/Not Resolved]
  - Dizziness [Recovered/Resolved]
  - Arthralgia [Unknown]
  - Eye pain [Unknown]
  - Rhinalgia [Unknown]
  - Portosplenomesenteric venous thrombosis [Unknown]
  - Abdominal discomfort [Recovered/Resolved]
  - Leukocytosis [Not Recovered/Not Resolved]

NARRATIVE: CASE EVENT DATE: 20190402
